FAERS Safety Report 9168575 (Version 1)
Quarter: 2013Q1

REPORT INFORMATION
  Report Type: Spontaneous
  Country: PH (occurrence: None)
  Receive Date: 20130307
  Receipt Date: 20130307
  Transmission Date: 20140127
  Serious: Yes (Life-Threatening, Other)
  Sender: FDA-Public Use
  Company Number: 2013P1002590

PATIENT
  Age: 39 Year
  Sex: Female

DRUGS (2)
  1. METHIMAZOLE [Suspect]
     Indication: BASEDOW^S DISEASE
  2. PROPRANOLOL [Concomitant]

REACTIONS (21)
  - Pyrexia [None]
  - Oropharyngeal pain [None]
  - Pancytopenia [None]
  - Agranulocytosis [None]
  - Hypokalaemia [None]
  - Hypomagnesaemia [None]
  - Hypocalcaemia [None]
  - Blood thyroid stimulating hormone decreased [None]
  - Tri-iodothyronine increased [None]
  - Thyroxine increased [None]
  - Ventricular tachyarrhythmia [None]
  - Cardio-respiratory arrest [None]
  - Asthenia [None]
  - Tachycardia [None]
  - Tremor [None]
  - Hyperreflexia [None]
  - Alanine aminotransferase increased [None]
  - Electrocardiogram T wave inversion [None]
  - Left ventricular hypertrophy [None]
  - Hypothyroidism [None]
  - Goitre [None]
